FAERS Safety Report 8051156-3 (Version None)
Quarter: 2012Q1

REPORT INFORMATION
  Report Type: 
  Country: None (occurrence: None)
  Receive Date: 20120117
  Receipt Date: 20120113
  Transmission Date: 20120608
  Serious: Yes (Death, Hospitalization)
  Sender: FDA-Public Use
  Company Number: PHFR2012GB000516

PATIENT
  Sex: Male

DRUGS (1)
  1. CLOZARIL [Suspect]
     Indication: SCHIZOPHRENIA
     Route: 048
     Dates: start: 19910513

REACTIONS (6)
  - MULTI-ORGAN FAILURE [None]
  - APPENDICITIS [None]
  - HYPOTENSION [None]
  - ABDOMINAL INFECTION [None]
  - MALAISE [None]
  - SEPSIS [None]
